FAERS Safety Report 6691703-7 (Version None)
Quarter: 2010Q2

REPORT INFORMATION
  Report Type: 
  Country: None (occurrence: None)
  Receive Date: 20100422
  Receipt Date: 20091105
  Transmission Date: 20101027
  Serious: No
  Sender: FDA-Public Use
  Company Number: US-ASTRAZENECA-2009SE21577

PATIENT
  Age: 52 Year
  Sex: Female
  Weight: 74.8 kg

DRUGS (3)
  1. TOPROL-XL [Suspect]
     Route: 048
     Dates: start: 20070101, end: 20091014
  2. TOPROL-XL [Suspect]
     Route: 048
     Dates: start: 20091014, end: 20091019
  3. VITAMIN TAB [Suspect]

REACTIONS (1)
  - HYPERSENSITIVITY [None]
